FAERS Safety Report 9263128 (Version 2)
Quarter: 2014Q1

REPORT INFORMATION
  Report Type: Report from Study
  Country: AU (occurrence: AU)
  Receive Date: 20130430
  Receipt Date: 20140106
  Transmission Date: 20141002
  Serious: Yes (Other)
  Sender: FDA-Public Use
  Company Number: AU-ROCHE-1208774

PATIENT
  Age: 55 Year
  Sex: Female

DRUGS (1)
  1. ACTEMRA [Suspect]
     Indication: RHEUMATOID ARTHRITIS
     Route: 042
     Dates: start: 20120329, end: 20130104

REACTIONS (2)
  - Hodgkin^s disease [Recovering/Resolving]
  - Pruritus [Not Recovered/Not Resolved]
